FAERS Safety Report 11175984 (Version 1)
Quarter: 2015Q2

REPORT INFORMATION
  Report Type: Spontaneous
  Country: US (occurrence: US)
  Receive Date: 20150609
  Receipt Date: 20150609
  Transmission Date: 20150821
  Serious: No
  Sender: FDA-Public Use
  Company Number: US-ASTRAZENECA-2015SE53277

PATIENT
  Age: 45 Year
  Sex: Male
  Weight: 104.3 kg

DRUGS (3)
  1. SYMBICORT [Suspect]
     Active Substance: BUDESONIDE\FORMOTEROL FUMARATE DIHYDRATE
     Indication: ASTHMA
     Dosage: 160 4.5MCG 1 TO 2 PUFFS THREE TIMES A DAY
     Route: 055
     Dates: start: 2012
  2. PREVACID [Concomitant]
     Active Substance: LANSOPRAZOLE
     Indication: ABDOMINAL DISCOMFORT
  3. VITAMINS [Concomitant]
     Active Substance: VITAMINS

REACTIONS (6)
  - Pain [Unknown]
  - Drug dose omission [Unknown]
  - Stress [Unknown]
  - Off label use [Unknown]
  - Intentional product misuse [Unknown]
  - Sinus disorder [Unknown]

NARRATIVE: CASE EVENT DATE: 2012
